FAERS Safety Report 5081519-X (Version None)
Quarter: 2006Q3

REPORT INFORMATION
  Report Type: 
  Country: None (occurrence: None)
  Receive Date: 20060815
  Receipt Date: 20060815
  Transmission Date: 20061208
  Serious: Yes (Hospitalization)
  Sender: FDA-Public Use
  Company Number: None

PATIENT
  Age: 58 Year
  Sex: Male
  Weight: 94 kg

DRUGS (2)
  1. HYDROXYZINE [Suspect]
     Indication: MENTAL DISORDER
     Dosage: 50 MG PO
     Route: 048
  2. QUETIAPINE [Suspect]
     Indication: MENTAL DISORDER
     Dosage: 100 MG PO
     Route: 048

REACTIONS (7)
  - DRUG SCREEN POSITIVE [None]
  - HALLUCINATION, VISUAL [None]
  - INTENTIONAL OVERDOSE [None]
  - PYREXIA [None]
  - SKIN LESION [None]
  - SUICIDE ATTEMPT [None]
  - URINE ALCOHOL TEST POSITIVE [None]
